FAERS Safety Report 6680067-0 (Version None)
Quarter: 2010Q2

REPORT INFORMATION
  Report Type: 
  Country: None (occurrence: None)
  Receive Date: 20100409
  Receipt Date: 20100329
  Transmission Date: 20101027
  Serious: Yes (Hospitalization)
  Sender: FDA-Public Use
  Company Number: 2010SP000214

PATIENT
  Sex: Male

DRUGS (5)
  1. OMNARIS [Suspect]
     Indication: MIDDLE EAR EFFUSION
     Dosage: 200 MG;QD;NASAL
     Route: 045
     Dates: start: 20091130, end: 20091209
  2. ADALAT [Concomitant]
  3. NEXIUM [Concomitant]
  4. CYMBALTA [Concomitant]
  5. PREV MEDS [Concomitant]

REACTIONS (11)
  - ABNORMAL SENSATION IN EYE [None]
  - BALANCE DISORDER [None]
  - BONE PAIN [None]
  - COORDINATION ABNORMAL [None]
  - HYPOAESTHESIA ORAL [None]
  - LIP DISORDER [None]
  - MIDDLE EAR EFFUSION [None]
  - OSTEOMYELITIS [None]
  - SENSORY DISTURBANCE [None]
  - TINNITUS [None]
  - VERTIGO [None]
